FAERS Safety Report 5029398-0 (Version None)
Quarter: 2006Q2

REPORT INFORMATION
  Report Type: 
  Country: None (occurrence: None)
  Receive Date: 20060614
  Receipt Date: 20060605
  Transmission Date: 20061013
  Serious: Yes (Death, Other)
  Sender: FDA-Public Use
  Company Number: 2006043547

PATIENT
  Age: 59 Year
  Sex: Female
  Weight: 72.5755 kg

DRUGS (2)
  1. AROMASIN [Suspect]
     Indication: BREAST CANCER FEMALE
     Dosage: ORAL
     Route: 048
     Dates: start: 20051027, end: 20060327
  2. FEMARA [Concomitant]

REACTIONS (11)
  - APNOEIC ATTACK [None]
  - ARTERIOSCLEROSIS CORONARY ARTERY [None]
  - CARDIAC ARREST [None]
  - CARDIOMEGALY [None]
  - CORONARY ARTERY STENOSIS [None]
  - EMPHYSEMA [None]
  - MYOCARDIAL ISCHAEMIA [None]
  - PAPILLARY MUSCLE DISORDER [None]
  - PULMONARY EMBOLISM [None]
  - THERAPY NON-RESPONDER [None]
  - VENTRICULAR HYPERTROPHY [None]
